FAERS Safety Report 5852088-9 (Version None)
Quarter: 2008Q3

REPORT INFORMATION
  Report Type: 
  Country: None (occurrence: None)
  Receive Date: 20080819
  Receipt Date: 20080819
  Transmission Date: 20090109
  Serious: Yes (Hospitalization)
  Sender: FDA-Public Use
  Company Number: None

PATIENT
  Age: 66 Year
  Sex: Male

DRUGS (14)
  1. LITHIUM CARBONATE [Suspect]
     Indication: BIPOLAR DISORDER
     Dosage: 1200MG QHS PO
     Route: 048
  2. SYNTHROID [Suspect]
  3. DEPAKOTE [Concomitant]
  4. THEOPHYLLINE [Suspect]
  5. DITROPAN [Concomitant]
  6. LASIX [Suspect]
  7. LIPITOR [Concomitant]
  8. INDERAL [Concomitant]
  9. VIT B12 [Concomitant]
  10. FISH OIL [Concomitant]
  11. M.V.I. [Concomitant]
  12. PRILOSEC [Concomitant]
  13. FOLIC ACID [Concomitant]
  14. POTASSIUM CHLORIDE [Concomitant]

REACTIONS (3)
  - ABASIA [None]
  - RENAL FAILURE ACUTE [None]
  - THERAPEUTIC AGENT TOXICITY [None]
